FAERS Safety Report 7736324-X (Version None)
Quarter: 2011Q3

REPORT INFORMATION
  Report Type: 
  Country: None (occurrence: None)
  Receive Date: 20110817
  Receipt Date: 20101013
  Transmission Date: 20111222
  Serious: Yes (Hospitalization, Other)
  Sender: FDA-Public Use
  Company Number: 20108844

PATIENT
  Sex: Male

DRUGS (4)
  1. LIORESAL [Suspect]
     Indication: MUSCLE SPASTICITY
     Dosage: SEE B5 MCG, DAILY, INTRATHECAL
     Route: 037
  2. CLONIDINE [Concomitant]
  3. FENTANYL [Concomitant]
  4. MORPHINE [Concomitant]

REACTIONS (4)
  - SOMNOLENCE [None]
  - LOSS OF CONSCIOUSNESS [None]
  - OVERDOSE [None]
  - HOSPITALISATION [None]
